FAERS Safety Report 19253779 (Version 2)
Quarter: 2021Q2

REPORT INFORMATION
  Report Type: Spontaneous
  Country: CH (occurrence: CH)
  Receive Date: 20210513
  Receipt Date: 20210525
  Transmission Date: 20210717
  Serious: No
  Sender: FDA-Public Use
  Company Number: NVSC2021CH106618

PATIENT
  Age: 68 Year
  Sex: Male

DRUGS (1)
  1. METHREXX [Suspect]
     Active Substance: METHOTREXATE
     Indication: PRODUCT USED FOR UNKNOWN INDICATION
     Dosage: 20 MG/ML  BETWEEN 1 A M AND 2 A M
     Route: 065

REACTIONS (4)
  - Chest pain [Not Recovered/Not Resolved]
  - Herpes zoster [Unknown]
  - Sleep deficit [Unknown]
  - Palpitations [Unknown]
